FAERS Safety Report 18080887 (Version 1)
Quarter: 2020Q3

REPORT INFORMATION
  Report Type: Spontaneous
  Country: FR (occurrence: FR)
  Receive Date: 20200728
  Receipt Date: 20200728
  Transmission Date: 20201103
  Serious: Yes (Hospitalization)
  Sender: FDA-Public Use
  Company Number: FR-MYLANLABS-2020M1066708

PATIENT
  Age: 47 Year
  Sex: Female
  Weight: 70 kg

DRUGS (13)
  1. LANSOPRAZOLE. [Concomitant]
     Active Substance: LANSOPRAZOLE
  2. LOVENOX [Concomitant]
     Active Substance: ENOXAPARIN SODIUM
     Dosage: UNK
  3. CERNEVIT [Concomitant]
     Active Substance: VITAMINS
  4. VANCOMYCINE MYLAN 1 G, POUDRE POUR SOLUTION POUR PERFUSION [Suspect]
     Active Substance: VANCOMYCIN
     Indication: SEPSIS
     Dosage: 2 GRAM, QD
     Route: 041
     Dates: start: 20180602, end: 20180606
  5. VALIUM [Concomitant]
     Active Substance: DIAZEPAM
  6. FUMAFER [Concomitant]
     Active Substance: FERROUS FUMARATE
  7. PARACETAMOL [Concomitant]
     Active Substance: ACETAMINOPHEN
  8. PIPERACILLINE PANPHARMA [Suspect]
     Active Substance: PIPERACILLIN SODIUM
     Indication: BACTERIAL SEPSIS
     Dosage: 12 GRAM, QD
     Route: 041
     Dates: start: 20180602, end: 20180617
  9. PRIMPERAN [Concomitant]
     Active Substance: METOCLOPRAMIDE HYDROCHLORIDE
  10. CIPROFLOXACINE ARROW [Suspect]
     Active Substance: CIPROFLOXACIN
     Indication: BACTERIAL SEPSIS
     Dosage: 1500 MILLIGRAM, QD
     Route: 048
     Dates: start: 20180610, end: 20180622
  11. BACLOFENE [Concomitant]
     Active Substance: BACLOFEN
  12. SPECIAFOLDINE [Concomitant]
     Active Substance: FOLIC ACID
     Dosage: UNK
  13. DIFFU K [Concomitant]
     Active Substance: POTASSIUM CHLORIDE
     Dosage: UNK

REACTIONS (1)
  - Autoimmune haemolytic anaemia [Recovered/Resolved]

NARRATIVE: CASE EVENT DATE: 20180623
